FAERS Safety Report 7141139-X (Version None)
Quarter: 2010Q4

REPORT INFORMATION
  Report Type: 
  Country: None (occurrence: None)
  Receive Date: 20101202
  Receipt Date: 20101202
  Transmission Date: 20110411
  Serious: Yes (Life-Threatening, Hospitalization, Other)
  Sender: FDA-Public Use
  Company Number: None

PATIENT
  Sex: Female
  Weight: 87.5442 kg

DRUGS (2)
  1. INVEGA [Suspect]
     Dosage: 156 MG 4 IN ONE MONTH INJECTION
     Dates: start: 20101018, end: 20101112
  2. RISPERDAL [Suspect]
     Dosage: 2 TABLETS DAILY MOUTH (SEVERAL YEARS)
     Route: 048

REACTIONS (17)
  - BLOOD GLUCOSE INCREASED [None]
  - BLOOD PRESSURE INCREASED [None]
  - BLOOD URINE [None]
  - DIARRHOEA [None]
  - DYSPNOEA [None]
  - EYELID OEDEMA [None]
  - FATIGUE [None]
  - HEART RATE INCREASED [None]
  - INCONTINENCE [None]
  - OEDEMA MOUTH [None]
  - OEDEMA PERIPHERAL [None]
  - PALPITATIONS [None]
  - RASH [None]
  - SPEECH DISORDER [None]
  - SWELLING FACE [None]
  - SWOLLEN TONGUE [None]
  - URINARY TRACT INFECTION [None]
